FAERS Safety Report 11258709 (Version 1)
Quarter: 2015Q3

REPORT INFORMATION
  Report Type: Spontaneous
  Country: US (occurrence: US)
  Receive Date: 20150710
  Receipt Date: 20150710
  Transmission Date: 20151125
  Serious: No
  Sender: FDA-Public Use
  Company Number: US-PFIZER INC-2015224379

PATIENT

DRUGS (1)
  1. ADVIL [Suspect]
     Active Substance: IBUPROFEN
     Indication: TOOTHACHE
     Dosage: (4) 220 MG, UNK

REACTIONS (4)
  - Drug ineffective [Unknown]
  - Abdominal discomfort [Unknown]
  - Pain in jaw [Unknown]
  - Insomnia [Unknown]
